FAERS Safety Report 7578009-9 (Version None)
Quarter: 2011Q2

REPORT INFORMATION
  Report Type: 
  Country: None (occurrence: None)
  Receive Date: 20110628
  Receipt Date: 20110613
  Transmission Date: 20111010
  Serious: Yes (Death, Hospitalization)
  Sender: FDA-Public Use
  Company Number: DE-WATSON-2011-08817

PATIENT
  Age: 11 Year
  Sex: Male

DRUGS (1)
  1. DIVALPROEX SODIUM [Suspect]
     Indication: PRODUCT USED FOR UNKNOWN INDICATION
     Dosage: UNK

REACTIONS (6)
  - ACUTE HEPATIC FAILURE [None]
  - POISONING [None]
  - SEPTIC SHOCK [None]
  - HYPERSENSITIVITY [None]
  - HEPATITIS A [None]
  - RENAL FAILURE [None]
